FAERS Safety Report 7944056-8 (Version None)
Quarter: 2011Q4

REPORT INFORMATION
  Report Type: 
  Country: None (occurrence: None)
  Receive Date: 20111128
  Receipt Date: 20111118
  Transmission Date: 20120403
  Serious: Yes (Other)
  Sender: FDA-Public Use
  Company Number: US-ASTRAZENECA-2011SE70822

PATIENT
  Age: 66 Year
  Sex: Female

DRUGS (2)
  1. OMEPRAZOLE [Suspect]
     Route: 048
  2. FAMARA [Concomitant]

REACTIONS (1)
  - BREAST CANCER [None]
